FAERS Safety Report 9515075 (Version 1)
Quarter: 2013Q1

REPORT INFORMATION
  Report Type: Spontaneous
  Country: US (occurrence: None)
  Receive Date: 20130305
  Receipt Date: 20130305
  Transmission Date: 20140127
  Serious: Yes (Hospitalization)
  Sender: FDA-Public Use
  Company Number: 163-21880-12043128

PATIENT
  Age: 70 Year
  Sex: Male

DRUGS (9)
  1. REVLIMID [Suspect]
     Indication: MYELODYSPLASTIC SYNDROME
     Dosage: 10 MG, 1 IN 1 D, PO
     Route: 048
     Dates: start: 201204
  2. ARICEPT (DONEPEZIL HYDDROCHLORIDE) (UNKNOWN) [Concomitant]
  3. ASPIRIN LOW DOSE (ACETYLSALICYLIC ACID) (UNKNOWN) [Concomitant]
  4. CALCIUM 500/D (CALCIUM D3 ^STADA^) (UNKNOWN)? [Concomitant]
  5. CLARITIN (LORATADINE) (UNKNOWN) [Concomitant]
  6. MAGNESIUM OXIDE (MAGNESIUM OXIDE) (UNKNOWN) [Concomitant]
  7. MULTI FOR HIM 50+ (MULTIVITAMINS) (UNKNOWN) [Concomitant]
  8. NAMENDA (MEMANTINE HYDOCHLORIDE) (UNKNOWN) [Concomitant]
  9. OMEPRAZOLE (OMEPRAZOLE) (UNKNOWN) [Concomitant]

REACTIONS (2)
  - Full blood count decreased [None]
  - Infection [None]
